FAERS Safety Report 5024907-X (Version None)
Quarter: 2006Q2

REPORT INFORMATION
  Report Type: 
  Country: None (occurrence: None)
  Receive Date: 20060607
  Receipt Date: 20060531
  Transmission Date: 20061013
  Serious: Yes (Death)
  Sender: FDA-Public Use
  Company Number: 225772

PATIENT
  Age: 70 Year
  Sex: Male

DRUGS (2)
  1. GRTPA(ALTEPLASE) PWDR + SOLVENT, INFUSION SOLN [Suspect]
     Indication: CEREBRAL INFARCTION
     Dosage: INTRAVENOUS
  2. ANTIBIOTIC (ANTIBIOTICS NOS) [Suspect]

REACTIONS (7)
  - BLOOD PRESSURE SYSTOLIC INCREASED [None]
  - CEREBRAL INFARCTION [None]
  - DIALYSIS [None]
  - HAEMORRHAGIC CEREBRAL INFARCTION [None]
  - HEART RATE DECREASED [None]
  - RENAL FAILURE [None]
  - RESPIRATORY ARREST [None]
